FAERS Safety Report 16410132 (Version 1)
Quarter: 2019Q2

REPORT INFORMATION
  Report Type: Spontaneous
  Country: GB (occurrence: GB)
  Receive Date: 20190610
  Receipt Date: 20190610
  Transmission Date: 20190711
  Serious: Yes (Death)
  Sender: FDA-Public Use
  Company Number: GB-009507513-1906GBR000480

PATIENT
  Age: 37 Year
  Sex: Male

DRUGS (1)
  1. TEMOZOLOMIDE. [Suspect]
     Active Substance: TEMOZOLOMIDE
     Indication: PRODUCT USED FOR UNKNOWN INDICATION
     Dosage: UNK
     Route: 048
     Dates: start: 20120105, end: 20120106

REACTIONS (2)
  - Toxic epidermal necrolysis [Fatal]
  - Stevens-Johnson syndrome [Fatal]

NARRATIVE: CASE EVENT DATE: 20120106
